FAERS Safety Report 4381224-9 (Version None)
Quarter: 2004Q2

REPORT INFORMATION
  Report Type: 
  Country: None (occurrence: None)
  Receive Date: 20040617
  Receipt Date: 20040617
  Transmission Date: 20050107
  Serious: Yes (Other)
  Sender: FDA-Public Use
  Company Number: None

PATIENT
  Sex: Female
  Weight: 62 kg

DRUGS (1)
  1. DEFEROXAMINE 500 MG VIALS ABBOTT [Suspect]
     Indication: THALASSAEMIA
     Dosage: 2500 MG SC /8 H 5 DAYS /WEEKS
     Route: 058

REACTIONS (1)
  - CHEST PAIN [None]
